FAERS Safety Report 10083951 (Version 2)
Quarter: 2015Q2

REPORT INFORMATION
  Report Type: Spontaneous
  Country: US (occurrence: US)
  Receive Date: 20140417
  Receipt Date: 20150526
  Transmission Date: 20150821
  Serious: Yes (Other)
  Sender: FDA-Public Use
  Company Number: US-BAYER-2014-057321

PATIENT
  Sex: Female

DRUGS (1)
  1. YAZ [Suspect]
     Active Substance: DROSPIRENONE\ETHINYL ESTRADIOL

REACTIONS (8)
  - Thrombosis [None]
  - Pain [None]
  - Emotional distress [None]
  - Deep vein thrombosis [None]
  - Mental disorder [None]
  - Injury [None]
  - Cerebrovascular accident [None]
  - Pulmonary embolism [None]
